FAERS Safety Report 4410513-4 (Version None)
Quarter: 2004Q3

REPORT INFORMATION
  Report Type: 
  Country: None (occurrence: None)
  Receive Date: 20040726
  Receipt Date: 20040712
  Transmission Date: 20050211
  Serious: Yes (Hospitalization)
  Sender: FDA-Public Use
  Company Number: K200401029

PATIENT
  Age: 68 Year
  Sex: Male

DRUGS (9)
  1. ALTACE CAPSULES (RAMIPRIL) CAPSULE, 1 TABLETS [Suspect]
     Indication: CORONARY ARTERY DISEASE
     Dosage: 1 TABLET, QD, ORAL
     Route: 048
     Dates: start: 20040101
  2. PIRETANIDE (PIRETANIDE) 1 TABLET [Suspect]
     Indication: CORONARY ARTERY DISEASE
     Dosage: 1 TABLET, QD, ORAL
     Route: 048
     Dates: start: 20040101
  3. ACTRAPHANE HM (INSULIN HUMAN INJECTION) ISOPHANE) SOLUTION, 28IU [Suspect]
     Indication: DIABETES MELLITUS
     Dosage: 28 IU, QD, SUBCUTANEOUS
     Route: 058
  4. BELOC-ZOK (METOPROLOL SUCCINATE) TABLET, 95MG [Suspect]
     Indication: HYPERTENSION
     Dosage: 95 MG, QD, ORAL
     Route: 048
  5. PROTAPHAN (INSULIN ISOPHANE, HUMAN BIOSYNTHETIC) SOLUTION, 10IU [Suspect]
     Indication: DIABETES MELLITUS
     Dosage: 10 IU QD, SUBCUTANEOUS
     Route: 058
  6. ASS ^CT-ARZNEIMITTEL^ (ACETYLSALICYLIC ACID) TABLET [Concomitant]
  7. ISCOVER (CLOPIDOGREL SULFATE) TABLET [Concomitant]
  8. OMEPRAZOLE (OMEPRAZOLE) TABLET [Concomitant]
  9. SORTIS ^GOEDECKE^ (ATORVASTATIN CALCIUM) TABLET [Concomitant]

REACTIONS (1)
  - HYPOGLYCAEMIA [None]
